FAERS Safety Report 25250257 (Version 1)
Quarter: 2025Q2

REPORT INFORMATION
  Report Type: Spontaneous
  Country: JP (occurrence: JP)
  Receive Date: 20250429
  Receipt Date: 20250429
  Transmission Date: 20250717
  Serious: Yes (Other)
  Sender: TAKEDA
  Company Number: JP-MMM-Otsuka-12BXZRTG

PATIENT

DRUGS (4)
  1. TRINTELLIX [Suspect]
     Active Substance: VORTIOXETINE HYDROBROMIDE
     Indication: Depression
  2. REXULTI [Suspect]
     Active Substance: BREXPIPRAZOLE
     Indication: Depression
     Dosage: 1 MILLIGRAM, QD
     Dates: start: 202504
  3. MIRTAZAPINE [Suspect]
     Active Substance: MIRTAZAPINE
     Indication: Depression
  4. RISPERIDONE [Suspect]
     Active Substance: RISPERIDONE
     Indication: Depression

REACTIONS (3)
  - Hypnopompic hallucination [Not Recovered/Not Resolved]
  - Screaming [Unknown]
  - Product use in unapproved indication [Unknown]
